FAERS Safety Report 4338078-6 (Version None)
Quarter: 2004Q1

REPORT INFORMATION
  Report Type: 
  Country: None (occurrence: None)
  Receive Date: 20040329
  Receipt Date: 20040128
  Transmission Date: 20041129
  Serious: No
  Sender: FDA-Public Use
  Company Number: USA040157892

PATIENT
  Age: 14 Year
  Sex: Male
  Weight: 80 kg

DRUGS (2)
  1. STRATTERA [Suspect]
     Indication: ATTENTION DEFICIT/HYPERACTIVITY DISORDER
     Dosage: 80 MG / IN THE MORNING
     Dates: start: 20040101
  2. STRATTERA [Suspect]
     Indication: DISTURBANCE IN ATTENTION
     Dosage: 80 MG / IN THE MORNING
     Dates: start: 20040101

REACTIONS (4)
  - BLUNTED AFFECT [None]
  - DECREASED APPETITE [None]
  - DIZZINESS [None]
  - IRRITABILITY [None]
